FAERS Safety Report 6750971-3 (Version None)
Quarter: 2010Q2

REPORT INFORMATION
  Report Type: 
  Country: None (occurrence: None)
  Receive Date: 20100602
  Receipt Date: 20100528
  Transmission Date: 20101027
  Serious: Yes (Hospitalization)
  Sender: FDA-Public Use
  Company Number: DK-WYE-G06199310

PATIENT
  Sex: Female
  Weight: 51 kg

DRUGS (2)
  1. EFFEXOR [Suspect]
     Indication: DEPRESSION
     Route: 048
     Dates: start: 20091127, end: 20100130
  2. CARBIDOPA/ENTACAPONE/LEVODOPA [Concomitant]
     Indication: PARKINSON'S DISEASE
     Dosage: UNKNOWN
     Route: 048

REACTIONS (1)
  - FALL [None]
